FAERS Safety Report 15665700 (Version 1)
Quarter: 2018Q4

REPORT INFORMATION
  Report Type: Report from Study
  Country: BW (occurrence: BW)
  Receive Date: 20181128
  Receipt Date: 20181128
  Transmission Date: 20190205
  Serious: Yes (Congenital Anomaly, Other)
  Sender: FDA-Public Use
  Company Number: BW-GILEAD-2018-0376108

PATIENT
  Sex: Male
  Weight: 3.2 kg

DRUGS (2)
  1. EMTRICITABINE/TENOFOVIR DISOPROXIL FUMARATE [Suspect]
     Active Substance: EMTRICITABINE\TENOFOVIR DISOPROXIL FUMARATE
     Indication: HIV INFECTION
     Dosage: UNK
     Route: 064
     Dates: start: 20180208
  2. DOLUTEGRAVIR [Suspect]
     Active Substance: DOLUTEGRAVIR
     Indication: HIV INFECTION
     Dosage: UNK
     Route: 064
     Dates: start: 20180208

REACTIONS (10)
  - Head lag abnormal [Unknown]
  - Foetal exposure during pregnancy [Recovered/Resolved]
  - Congenital anomaly [Unknown]
  - Brachial plexopathy [Unknown]
  - Constricted ear deformity [Unknown]
  - Arachnodactyly [Unknown]
  - Ill-defined disorder [Unknown]
  - Micrognathia [Unknown]
  - Talipes [Unknown]
  - Low set ears [Unknown]
